FAERS Safety Report 5118161-8 (Version None)
Quarter: 2006Q4

REPORT INFORMATION
  Report Type: 
  Country: None (occurrence: None)
  Receive Date: 20061002
  Receipt Date: 20060920
  Transmission Date: 20070319
  Serious: Yes (Other)
  Sender: FDA-Public Use
  Company Number: PHBS2006JP14683

PATIENT
  Age: 25 Year
  Sex: Female

DRUGS (4)
  1. AREDIA [Suspect]
     Route: 065
  2. ZOMETA [Suspect]
     Dosage: UNK, ONCE/SINGLE
     Route: 065
  3. HERCEPTIN [Concomitant]
     Route: 065
  4. TAXOL [Concomitant]
     Route: 065

REACTIONS (2)
  - GINGIVAL PAIN [None]
  - OSTEONECROSIS [None]
